FAERS Safety Report 25253912 (Version 1)
Quarter: 2025Q2

REPORT INFORMATION
  Report Type: Report from Study
  Country: US (occurrence: US)
  Receive Date: 20250430
  Receipt Date: 20250430
  Transmission Date: 20250717
  Serious: Yes (Other)
  Sender: ABBVIE
  Company Number: US-ABBVIE-6251004

PATIENT
  Age: 72 Year
  Sex: Female

DRUGS (1)
  1. CREON [Suspect]
     Active Substance: PANCRELIPASE AMYLASE\PANCRELIPASE LIPASE\PANCRELIPASE PROTEASE
     Indication: Product used for unknown indication
     Route: 048
     Dates: start: 2023

REACTIONS (6)
  - Neoplasm malignant [Unknown]
  - Complication associated with device [Unknown]
  - COVID-19 [Unknown]
  - Infection [Unknown]
  - Sputum discoloured [Unknown]
  - Colostomy bag user [Unknown]

NARRATIVE: CASE EVENT DATE: 20250406
